FAERS Safety Report 23904909 (Version 6)
Quarter: 2024Q3

REPORT INFORMATION
  Report Type: Spontaneous
  Country: US (occurrence: US)
  Receive Date: 20240527
  Receipt Date: 20240821
  Transmission Date: 20241016
  Serious: Yes (Hospitalization)
  Sender: CALLIDITAS THERAPEUTICS
  Company Number: US-Calliditas-2024CAL00784

PATIENT
  Age: 46 Year
  Sex: Male
  Weight: 101 kg

DRUGS (1)
  1. TARPEYO [Suspect]
     Active Substance: BUDESONIDE
     Indication: IgA nephropathy
     Route: 048
     Dates: start: 20240419

REACTIONS (6)
  - Pain in extremity [Unknown]
  - Muscle spasms [Unknown]
  - Pain in extremity [Unknown]
  - Road traffic accident [Unknown]
  - Skin abrasion [Unknown]
  - Acne [Unknown]
